FAERS Safety Report 17534581 (Version 10)
Quarter: 2021Q4

REPORT INFORMATION
  Report Type: Report from Study
  Country: AT (occurrence: AT)
  Receive Date: 20200312
  Receipt Date: 20211104
  Transmission Date: 20220303
  Serious: Yes (Hospitalization, Other)
  Sender: FDA-Public Use
  Company Number: AT-ROCHE-2520357

PATIENT
  Age: 54 Year
  Sex: Female
  Weight: 75 kg

DRUGS (83)
  1. TRASTUZUMAB [Suspect]
     Active Substance: TRASTUZUMAB
     Indication: HER2 positive breast cancer
     Dosage: 600 MILLIGRAM,Q3W(MOST RECENT DOSE PRIOR TO EVENT:26/JUN/2018)
     Route: 042
     Dates: start: 20180328, end: 20180328
  2. TRASTUZUMAB [Suspect]
     Active Substance: TRASTUZUMAB
     Dosage: 408 MILLIGRAM, Q3W
     Route: 042
     Dates: start: 20180423, end: 20180423
  3. TRASTUZUMAB [Suspect]
     Active Substance: TRASTUZUMAB
     Dosage: 384 MILLIGRAM, Q3W
     Route: 042
     Dates: start: 20180515, end: 20180605
  4. TRASTUZUMAB [Suspect]
     Active Substance: TRASTUZUMAB
     Dosage: 372 MILLIGRAM, Q3W
     Route: 042
     Dates: start: 20180626, end: 20181010
  5. TRASTUZUMAB [Suspect]
     Active Substance: TRASTUZUMAB
     Dosage: 378 MILLIGRAM, Q3W (MOST RECENT DOSE ON 09/JAN/2019)
     Route: 042
     Dates: start: 20181102, end: 20181123
  6. TRASTUZUMAB [Suspect]
     Active Substance: TRASTUZUMAB
     Dosage: 378 MILLIGRAM, Q3W (MOST RECENT DOSE ON 09/JAN/2019 )
     Route: 042
     Dates: start: 20181123
  7. TRASTUZUMAB [Suspect]
     Active Substance: TRASTUZUMAB
     Dosage: 378 MILLIGRAM, Q3W, 378 MG EVERY 3 WEEKS
     Route: 042
     Dates: start: 20181214, end: 20190109
  8. TRASTUZUMAB [Suspect]
     Active Substance: TRASTUZUMAB
     Dosage: 600 MILLIGRAM, Q3W, 600 MG EVERY 3 WEEKS
     Route: 042
     Dates: start: 20191011, end: 20191011
  9. TRASTUZUMAB [Suspect]
     Active Substance: TRASTUZUMAB
     Dosage: 384 MILLIGRAM, Q3W, 384 MG EVERY 3 WEEKS
     Route: 042
     Dates: start: 20180515, end: 20180515
  10. TRASTUZUMAB [Suspect]
     Active Substance: TRASTUZUMAB
     Dosage: 600 MILLIGRAM, QD, 600 MG, EVERY 3 WEEK; MOST RECENT DOSE PRIOR TO THE EVENT: 11 OCT 2019
     Route: 042
     Dates: start: 20180328, end: 20180328
  11. TRASTUZUMAB [Suspect]
     Active Substance: TRASTUZUMAB
     Dosage: 378 MILLIGRAM, Q3W (MOST RECENT DOSE WAS RECEIVED ON 09/JAN/2019)
     Route: 042
     Dates: start: 20181123, end: 20181123
  12. TRASTUZUMAB [Suspect]
     Active Substance: TRASTUZUMAB
     Dosage: 600 MG, EVERY 3 WEEK; MOST RECENT DOSE: 11 OCT 2019, 28 MAR 2018
     Route: 042
     Dates: start: 20180328
  13. TRASTUZUMAB [Suspect]
     Active Substance: TRASTUZUMAB
     Dosage: 600 MG, EVERY 3 WEEK; MOST RECENT DOSE PRIOR TO EVENT: 26 JUN 2018
     Route: 042
     Dates: start: 20180328, end: 20180328
  14. TRASTUZUMAB [Suspect]
     Active Substance: TRASTUZUMAB
     Dosage: 600 MILLIGRAM, Q3W
     Route: 042
     Dates: start: 20191011, end: 20191025
  15. TRASTUZUMAB [Suspect]
     Active Substance: TRASTUZUMAB
     Dosage: 1440 MILLIGRAM, Q3W
     Route: 042
     Dates: start: 20190119, end: 20200129
  16. PERTUZUMAB [Suspect]
     Active Substance: PERTUZUMAB
     Indication: HER2 positive breast cancer
     Dosage: 840 MILLIGRAM, Q3W (MOST RECENT DOSE PRIOR TO EVENT: 28/MAR/2018, 14/DEC/2018)
     Route: 042
     Dates: start: 20180328, end: 20180328
  17. PERTUZUMAB [Suspect]
     Active Substance: PERTUZUMAB
     Dosage: UNK
  18. PERTUZUMAB [Suspect]
     Active Substance: PERTUZUMAB
     Dosage: 420 MILLIGRAM, Q3W
     Route: 042
     Dates: start: 20180423, end: 20180423
  19. PERTUZUMAB [Suspect]
     Active Substance: PERTUZUMAB
     Dosage: 420 MILLIGRAM, Q3W
     Route: 042
     Dates: start: 20181214, end: 20190109
  20. ABRAXANE [Suspect]
     Active Substance: PACLITAXEL
     Indication: HER2 positive breast cancer
     Dosage: 147.76 MILLIGRAM, QW
     Route: 042
     Dates: start: 20180328, end: 20180409
  21. ABRAXANE [Suspect]
     Active Substance: PACLITAXEL
     Indication: Breast cancer
     Dosage: 177.17 MILLIGRAM, QW
     Route: 042
     Dates: start: 20180416, end: 20180508
  22. ABRAXANE [Suspect]
     Active Substance: PACLITAXEL
     Dosage: 172.67 MILLIGRAM, QW
     Route: 042
     Dates: start: 20180515, end: 20180515
  23. ABRAXANE [Suspect]
     Active Substance: PACLITAXEL
     Dosage: 147.76 MILLIGRAM, QW
     Route: 042
     Dates: start: 20180522, end: 20180529
  24. ABRAXANE [Suspect]
     Active Substance: PACLITAXEL
     Dosage: 172.67 MILLIGRAM, QW
     Route: 042
     Dates: start: 20180605, end: 20180605
  25. ABRAXANE [Suspect]
     Active Substance: PACLITAXEL
     Dosage: 177.17 MILLIGRAM, QW
     Route: 042
     Dates: start: 20180612, end: 20180612
  26. ABRAXANE [Suspect]
     Active Substance: PACLITAXEL
     Dosage: 170.35 MILLIGRAM, QW
     Route: 042
     Dates: start: 20180626, end: 20180718
  27. ABRAXANE [Suspect]
     Active Substance: PACLITAXEL
     Dosage: 171.51 MILLIGRAM, QW
     Route: 042
     Dates: start: 20181102, end: 20181123
  28. ABRAXANE [Suspect]
     Active Substance: PACLITAXEL
     Dosage: 171.51 MILLIGRAM, QW
     Route: 042
     Dates: start: 20181207, end: 20181221
  29. ABRAXANE [Suspect]
     Active Substance: PACLITAXEL
     Dosage: 172.67 MILLIGRAM, QW
     Route: 042
     Dates: start: 20190102, end: 20190102
  30. ABRAXANE [Suspect]
     Active Substance: PACLITAXEL
     Dosage: 171.51 MILLIGRAM, QW
     Route: 042
     Dates: start: 20190109, end: 20190109
  31. ABRAXANE [Suspect]
     Active Substance: PACLITAXEL
     Dosage: 172.67 MILLIGRAM, QW
     Route: 042
     Dates: start: 20190116, end: 20190116
  32. ABRAXANE [Suspect]
     Active Substance: PACLITAXEL
     Dosage: 177.17 MILLIGRAM QW, ON 08/MAY/2018 MOST RECENT DOSE PRIOR TO EVENT: 16/JAN/2019
     Route: 042
     Dates: start: 20180416
  33. ABRAXANE [Suspect]
     Active Substance: PACLITAXEL
     Dosage: 177.17 MG; DOSE ON 08/MAY/2018 MOST RECENT DOSE PRIOR TO EVENT: 16/JAN/2019
     Route: 042
     Dates: start: 20180416
  34. ABRAXANE [Suspect]
     Active Substance: PACLITAXEL
     Dosage: 177.17 MILLIGRAM QW DOSE ON 08/MAY/2018 MOST RECENT DOSE PRIOR TO EVENT: 16/JAN/2019
     Route: 042
     Dates: start: 20180522, end: 20180529
  35. ABRAXANE [Suspect]
     Active Substance: PACLITAXEL
     Dosage: 177.17 MILLIGRAM, QW
     Route: 042
     Dates: start: 20180612, end: 20180619
  36. ABRAXANE [Suspect]
     Active Substance: PACLITAXEL
     Dosage: 172.67 MILLIGRAM, QW
     Route: 042
     Dates: start: 20180515, end: 20180515
  37. ABRAXANE [Suspect]
     Active Substance: PACLITAXEL
     Dosage: 172.67 MILLIGRAM, QW
     Route: 042
     Dates: start: 20190102, end: 20190515
  38. ADO-TRASTUZUMAB EMTANSINE [Suspect]
     Active Substance: ADO-TRASTUZUMAB EMTANSINE
     Indication: HER2 positive breast cancer
     Dosage: 230.4 MILLIGRAM,Q3W(28/JUN/2019, 17/MAY/2019; 16/JAN/2019)
     Route: 042
     Dates: start: 20190131, end: 20190517
  39. ADO-TRASTUZUMAB EMTANSINE [Suspect]
     Active Substance: ADO-TRASTUZUMAB EMTANSINE
     Dosage: UNK
  40. ADO-TRASTUZUMAB EMTANSINE [Suspect]
     Active Substance: ADO-TRASTUZUMAB EMTANSINE
     Dosage: 230.4 MG:EVERY 3 WEEK;17/MAY/2019, RECENT DOSE PRIOR TO VENT:28/JUN/2019
     Route: 042
     Dates: start: 20190131, end: 20190517
  41. ADO-TRASTUZUMAB EMTANSINE [Suspect]
     Active Substance: ADO-TRASTUZUMAB EMTANSINE
     Dosage: 230.4 MILLIGRAM, Q3W
     Route: 042
     Dates: start: 20190131
  42. ADO-TRASTUZUMAB EMTANSINE [Suspect]
     Active Substance: ADO-TRASTUZUMAB EMTANSINE
     Dosage: DOSE ON 17/MAY/2019 MOST RECENT DOSE PRIOR TO THE
     Route: 042
     Dates: start: 20210228
  43. CAPECITABINE [Suspect]
     Active Substance: CAPECITABINE
     Indication: Breast cancer
     Dosage: 500 MILLIGRAM (OTHER )
     Route: 048
     Dates: start: 20191126, end: 20191218
  44. CAPECITABINE [Suspect]
     Active Substance: CAPECITABINE
     Indication: HER2 positive breast cancer
     Dosage: 500 MILLIGRAM (OTHER  )
     Route: 048
     Dates: start: 20191219
  45. NAVELBINE [Suspect]
     Active Substance: VINORELBINE TARTRATE
     Indication: HER2 positive breast cancer
     Dosage: 50 MICROGRAM (RECENT DOSE: 28/OCT/2019)
     Route: 048
     Dates: start: 20191011, end: 20191025
  46. NAVELBINE [Suspect]
     Active Substance: VINORELBINE TARTRATE
     Indication: Breast cancer
     Dosage: 50 MILLIGRAM (RECENT DOSE: 28/OCT/2019)
     Route: 048
     Dates: start: 20191001
  47. NAVELBINE [Suspect]
     Active Substance: VINORELBINE TARTRATE
     Dosage: UNK
  48. NAVELBINE [Suspect]
     Active Substance: VINORELBINE TARTRATE
     Dosage: 50 MILLIGRAM, 50 MG RECENT DOSE: 28/OCT/2019
     Route: 048
     Dates: start: 20191011
  49. NAVELBINE [Suspect]
     Active Substance: VINORELBINE TARTRATE
     Dosage: 50 MICROGRAM, 50 MICROGRAM (RECENT DOSE: 28/OCT/2019)
     Route: 048
     Dates: start: 20191011
  50. NAVELBINE [Suspect]
     Active Substance: VINORELBINE TARTRATE
     Dosage: 50 MILLIGRAM, Q2W, 50 MG; RECENT DOSE: 28/OCT/2019
     Route: 048
     Dates: start: 20191011, end: 20191025
  51. NERATINIB [Suspect]
     Active Substance: NERATINIB
     Indication: Breast cancer
     Dosage: 1440 MILLIGRAM, QD
     Route: 048
     Dates: start: 20200108, end: 20200118
  52. NERATINIB [Suspect]
     Active Substance: NERATINIB
     Indication: HER2 positive breast cancer
     Dosage: 1440 MILLIGRAM, QD
     Route: 048
     Dates: start: 20200119, end: 20200129
  53. TAXOL [Suspect]
     Active Substance: PACLITAXEL
     Indication: HER2 positive breast cancer
     Dosage: 147.76 MILLIGRAM (WEEKLY RECENT DOSE ON 09/APR/2018)
     Route: 042
     Dates: start: 20180328, end: 20180409
  54. TAXOL [Suspect]
     Active Substance: PACLITAXEL
     Indication: Breast cancer
     Dosage: 172.67 MILLIGRAM, QW, 172.67 MG, 1/WEEK
     Route: 042
     Dates: start: 20190102, end: 20190102
  55. TAXOL [Suspect]
     Active Substance: PACLITAXEL
     Dosage: 171.51 MILLIGRAM, QW, 171.51 MG, 1/WEEK
     Route: 042
     Dates: start: 20190109, end: 20190109
  56. TAXOL [Suspect]
     Active Substance: PACLITAXEL
     Dosage: 177.17 MILLIGRAM, QW, 177.17 MG, 1/WEEK
     Route: 042
     Dates: start: 20180612, end: 20180612
  57. TAXOL [Suspect]
     Active Substance: PACLITAXEL
     Dosage: 171.51 MILLIGRAM, QW, 171.51 MG, 1/WEEK
     Route: 042
     Dates: start: 20181207, end: 20181221
  58. TAXOL [Suspect]
     Active Substance: PACLITAXEL
     Dosage: 172.67 MILLIGRAM, QW, 172.67 MG, 1/WEEK
     Route: 042
     Dates: start: 20180605, end: 20180605
  59. TAXOL [Suspect]
     Active Substance: PACLITAXEL
     Dosage: 172.67 MILLIGRAM, QW, 170.35 MG, 1/WEEK
     Route: 042
     Dates: start: 20180626, end: 20180718
  60. TAXOL [Suspect]
     Active Substance: PACLITAXEL
     Dosage: 171.51 MILLIGRAM, QW, 171.51 MG, 1/WEEK
     Route: 042
     Dates: start: 20181102, end: 20181123
  61. TAXOL [Suspect]
     Active Substance: PACLITAXEL
     Dosage: 147.76 MILLIGRAM, QW,147.76 MG, 1/WEEK
     Route: 042
     Dates: start: 20180522, end: 20180529
  62. TAXOL [Suspect]
     Active Substance: PACLITAXEL
     Dosage: 172.67 MILLIGRAM, QW, 172.67 MG, 1/WEEK
     Route: 042
     Dates: start: 20180515, end: 20180515
  63. TAXOL [Suspect]
     Active Substance: PACLITAXEL
     Dosage: 177.17 MILLIGRAM, QW, 177.17 MG, 1/WEEK
     Route: 042
     Dates: start: 20180416, end: 20180508
  64. TAXOL [Suspect]
     Active Substance: PACLITAXEL
     Dosage: 172.67 MILLIGRAM, QW, 172.67 MG, 1/WEEK
     Route: 042
     Dates: start: 20190116, end: 20190116
  65. CYCLOPHOSPHAMIDE [Suspect]
     Active Substance: CYCLOPHOSPHAMIDE
     Indication: HER2 positive breast cancer
     Dosage: 2.5 MILLIGRAM 0.5  WEEK
     Route: 048
  66. CYCLOPHOSPHAMIDE [Suspect]
     Active Substance: CYCLOPHOSPHAMIDE
     Dosage: 50 MILLIGRAM, QD
     Route: 048
     Dates: start: 20200219, end: 20200309
  67. METHOTREXATE [Suspect]
     Active Substance: METHOTREXATE
     Indication: HER2 positive breast cancer
     Dosage: 2.5 MILLIGRAM, BIWEEKLY
     Route: 048
     Dates: start: 20200219, end: 20200309
  68. METHOTREXATE [Suspect]
     Active Substance: METHOTREXATE
     Dosage: UNK
  69. CAL D VITA [Concomitant]
     Indication: Product used for unknown indication
     Dosage: UNK (ONGOING CHECKED)
     Route: 065
     Dates: start: 20190425
  70. DEXPANTHENOL\HYALURONATE SODIUM [Concomitant]
     Active Substance: DEXPANTHENOL\HYALURONATE SODIUM
     Indication: Conjunctivitis
     Dosage: UNK
     Dates: start: 20180619
  71. DEXAMETHASONE [Concomitant]
     Active Substance: DEXAMETHASONE
     Indication: Product used for unknown indication
     Dosage: UNK
     Dates: start: 20190628, end: 20190830
  72. PANTOLOC                           /01263201/ [Concomitant]
     Indication: Product used for unknown indication
     Dosage: UNK (ONGOING CHECKED)
     Route: 065
     Dates: start: 20191011
  73. KYTRIL [Concomitant]
     Active Substance: GRANISETRON HYDROCHLORIDE
     Indication: Product used for unknown indication
     Dosage: UNK (ONGOING NOT CHECKED)
     Dates: start: 20190628, end: 20190830
  74. OCTENISEPT                         /00972101/ [Concomitant]
     Indication: Onycholysis
     Dosage: UNK
     Dates: start: 20180725
  75. DEXPANTHENOL [Concomitant]
     Active Substance: DEXPANTHENOL
     Indication: Onycholysis
     Dosage: UNK
     Dates: start: 20180619
  76. DEXPANTHENOL [Concomitant]
     Active Substance: DEXPANTHENOL
     Indication: Conjunctivitis
     Dosage: UNK
     Dates: start: 20180725
  77. XGEVA [Concomitant]
     Active Substance: DENOSUMAB
     Indication: Product used for unknown indication
     Dosage: UNK
     Dates: start: 20191219, end: 20200410
  78. ENTEROBENE [Concomitant]
     Indication: Product used for unknown indication
     Dosage: UNK
     Dates: start: 20200108, end: 20200113
  79. METAMIZOLE SODIUM [Concomitant]
     Active Substance: METAMIZOLE SODIUM
     Indication: Product used for unknown indication
     Dosage: UNK
     Route: 065
     Dates: start: 20200224, end: 20200410
  80. HYDROMORPHONE HYDROCHLORIDE [Concomitant]
     Active Substance: HYDROMORPHONE HYDROCHLORIDE
     Indication: Product used for unknown indication
     Dosage: UNK
     Dates: start: 20200228, end: 20200410
  81. HYDROMORPHONE HYDROCHLORIDE [Concomitant]
     Active Substance: HYDROMORPHONE HYDROCHLORIDE
     Dosage: UNK
     Dates: start: 20200311, end: 20200410
  82. HYDROMORPHONE HYDROCHLORIDE [Concomitant]
     Active Substance: HYDROMORPHONE HYDROCHLORIDE
     Dosage: UNK
     Dates: start: 20200228, end: 20200311
  83. ZOFRAN                             /00955301/ [Concomitant]
     Dosage: UNK

REACTIONS (12)
  - Pain of skin [Recovered/Resolved]
  - Febrile neutropenia [Recovered/Resolved]
  - Stomatitis [Recovered/Resolved]
  - Breast cancer metastatic [Recovering/Resolving]
  - Tumour pain [Recovered/Resolved]
  - Diarrhoea [Recovered/Resolved]
  - C-reactive protein increased [Recovered/Resolved]
  - Dyspnoea [Recovered/Resolved]
  - Overdose [Unknown]
  - Intentional product use issue [Unknown]
  - Off label use [Unknown]
  - Skin lesion [Recovering/Resolving]
